FAERS Safety Report 6943480-X (Version None)
Quarter: 2010Q3

REPORT INFORMATION
  Report Type: 
  Country: None (occurrence: None)
  Receive Date: 20100826
  Receipt Date: 20100814
  Transmission Date: 20110219
  Serious: Yes (Hospitalization)
  Sender: FDA-Public Use
  Company Number: IT-MEDIMMUNE-MEDI-0011491

PATIENT
  Sex: Male

DRUGS (1)
  1. ETHYOL [Suspect]
     Indication: STOMATITIS RADIATION
     Route: 042

REACTIONS (3)
  - ERYTHEMA [None]
  - LARYNGEAL DYSPNOEA [None]
  - VOMITING [None]
